FAERS Safety Report 7092134-0 (Version None)
Quarter: 2010Q4

REPORT INFORMATION
  Report Type: 
  Country: None (occurrence: None)
  Receive Date: 20101101
  Receipt Date: 20101021
  Transmission Date: 20110411
  Serious: Yes (Other)
  Sender: FDA-Public Use
  Company Number: 732527

PATIENT
  Age: 68 Year
  Sex: Female
  Weight: 71.2 kg

DRUGS (22)
  1. HEPARIN SODIUM INJECTION [Suspect]
     Indication: CORONARY ARTERY BYPASS
     Dosage: 3000 UNITS, INTRAVENOUS; 10000 UNITS, INTRAVENOUS 20000 UNITS, INTRAVENOUS
     Route: 042
     Dates: start: 20080109, end: 20080109
  2. HEPARIN SODIUM INJECTION [Suspect]
     Indication: CORONARY ARTERY BYPASS
     Dosage: 3000 UNITS, INTRAVENOUS; 10000 UNITS, INTRAVENOUS 20000 UNITS, INTRAVENOUS
     Route: 042
     Dates: start: 20080109, end: 20080109
  3. HEPARIN SODIUM INJECTION [Suspect]
     Indication: CORONARY ARTERY BYPASS
     Dosage: 3000 UNITS, INTRAVENOUS; 10000 UNITS, INTRAVENOUS 20000 UNITS, INTRAVENOUS
     Route: 042
     Dates: start: 20080109, end: 20080109
  4. PLAVIX [Suspect]
     Indication: PRODUCT USED FOR UNKNOWN INDICATION
     Dates: start: 20080101, end: 20080111
  5. 0.9% SODIUM CHLORIDE IRRIGATION, USP, FLEXIBLE IRRIGATION CONTAINER (S [Concomitant]
  6. CLONIDINE [Concomitant]
  7. FUROSEMIDE INJECTION, USP [Concomitant]
  8. METOPROLOL TARTRATE INJECTION, USP [Concomitant]
  9. (PAPAVERINE) [Concomitant]
  10. CEFAZOLIN [Concomitant]
  11. VANCOMYCIN HYDROCHLORIDE [Concomitant]
  12. (ALL OTHER THERAPEUTIC PRODUCTS) [Concomitant]
  13. DOBUTAMINE INJ, USP (DOBUTAMINE HYDROCHLORIDE) [Concomitant]
  14. (HESPAN /00375601/) [Concomitant]
  15. FAMOTIDINE [Concomitant]
  16. (ABSORBABLE GELATIN SPONGE) [Concomitant]
  17. LISINOPRIL [Concomitant]
  18. AMLODIPINE [Concomitant]
  19. (HYDRALAZINE) [Concomitant]
  20. LOVASTATIN [Concomitant]
  21. (ACETYLSALICYLIC ACID) [Concomitant]
  22. ZANTAC [Concomitant]

REACTIONS (17)
  - ANAEMIA [None]
  - ANAPHYLACTIC REACTION [None]
  - CARDIOGENIC SHOCK [None]
  - CLOSTRIDIAL INFECTION [None]
  - DIABETES MELLITUS [None]
  - ENCEPHALOPATHY [None]
  - ISCHAEMIC CEREBRAL INFARCTION [None]
  - KLEBSIELLA INFECTION [None]
  - LACTIC ACIDOSIS [None]
  - METABOLIC ACIDOSIS [None]
  - PLEURAL EFFUSION [None]
  - PULMONARY OEDEMA [None]
  - RENAL FAILURE ACUTE [None]
  - RESPIRATORY DISTRESS [None]
  - RESPIRATORY FAILURE [None]
  - THROMBOTIC THROMBOCYTOPENIC PURPURA [None]
  - URINARY TRACT INFECTION BACTERIAL [None]
